FAERS Safety Report 9911904 (Version 2)
Quarter: 2014Q1

REPORT INFORMATION
  Report Type: Spontaneous
  Country: US (occurrence: US)
  Receive Date: 20140219
  Receipt Date: 20140219
  Transmission Date: 20141002
  Serious: Yes (Other)
  Sender: FDA-Public Use
  Company Number: US-MYLANLABS-2013S1017492

PATIENT
  Sex: 0

DRUGS (4)
  1. EPIPEN [Suspect]
     Indication: FOOD ALLERGY
     Dosage: UNK
  2. EPIPEN [Suspect]
     Indication: DYSPNOEA
     Dosage: UNK
  3. EPIPEN [Suspect]
     Indication: FOOD ALLERGY
  4. EPIPEN [Suspect]
     Indication: DYSPNOEA

REACTIONS (1)
  - Drug ineffective [Unknown]
